FAERS Safety Report 5554511-6 (Version None)
Quarter: 2007Q4

REPORT INFORMATION
  Report Type: 
  Country: None (occurrence: None)
  Receive Date: 20071210
  Receipt Date: 20071210
  Transmission Date: 20080405
  Serious: No
  Sender: FDA-Public Use
  Company Number: None

PATIENT
  Age: 60 Year
  Sex: Female
  Weight: 92.9874 kg

DRUGS (6)
  1. CARDURA [Suspect]
     Indication: RENAL FAILURE
     Dosage: 8MG PO
     Route: 048
     Dates: start: 20070919, end: 20071120
  2. CARDURA [Suspect]
     Indication: TYPE 2 DIABETES MELLITUS
     Dosage: 8MG PO
     Route: 048
     Dates: start: 20070919, end: 20071120
  3. COREG [Concomitant]
  4. LISINOPRIL [Concomitant]
  5. NORVASC [Concomitant]
  6. AVAPRO [Concomitant]

REACTIONS (4)
  - BLOOD PRESSURE DECREASED [None]
  - CARDIAC DISORDER [None]
  - DIZZINESS [None]
  - NERVOUSNESS [None]
